FAERS Safety Report 10373745 (Version 1)
Quarter: 2014Q1

REPORT INFORMATION
  Report Type: Spontaneous
  Country: US (occurrence: None)
  Receive Date: 20140306
  Receipt Date: 20140306
  Transmission Date: 20141002
  Serious: Yes (Other)
  Sender: FDA-Public Use
  Company Number: 163-21880-13051842

PATIENT
  Age: 71 Year
  Sex: Male
  Weight: 90.7 kg

DRUGS (5)
  1. REVLIMID (LENALIDOMIDE) (15 MILLIGRAM, CAPSULES) [Suspect]
     Indication: PLASMA CELL MYELOMA
     Dosage: 1 IN 48 HR
     Route: 048
     Dates: start: 20130128
  2. SENOKOT-S [Concomitant]
  3. FENTANYL [Concomitant]
  4. ISOSORBIDE [Concomitant]
  5. ADULT ASPIRIN (ACETYLSALICYLIC ACID) [Concomitant]

REACTIONS (1)
  - Full blood count decreased [None]
